FAERS Safety Report 24601925 (Version 1)
Quarter: 2024Q4

REPORT INFORMATION
  Report Type: Report from Study
  Country: IE (occurrence: IE)
  Receive Date: 20241111
  Receipt Date: 20241111
  Transmission Date: 20250115
  Serious: Yes (Hospitalization)
  Sender: TAKEDA
  Company Number: IE-TAKEDA-2022TUS069174

PATIENT
  Age: 39 Year
  Sex: Male

DRUGS (5)
  1. HUMAN IMMUNOGLOBULIN G [Suspect]
     Active Substance: HUMAN IMMUNOGLOBULIN G
     Indication: Autoimmune neutropenia
     Dosage: 29 GRAM, Q2WEEKS
     Dates: start: 20220909
  2. NALTREXONE [Concomitant]
     Active Substance: NALTREXONE
     Dosage: 4.5 MILLIGRAM, QD
  3. CALCIUM CARBONATE [Concomitant]
     Active Substance: CALCIUM CARBONATE
     Dosage: 2 MILLIGRAM, QD
  4. GABAPENTIN [Concomitant]
     Active Substance: GABAPENTIN
     Dosage: 400 MILLIGRAM, TID
  5. ESOMEPRAZOLE [Concomitant]
     Active Substance: ESOMEPRAZOLE
     Dosage: 20 GRAM, QD

REACTIONS (9)
  - Blood phosphorus decreased [Not Recovered/Not Resolved]
  - Bladder disorder [Recovered/Resolved]
  - Gastrointestinal disorder [Recovered/Resolved]
  - Sinonasal obstruction [Recovered/Resolved]
  - Device leakage [Recovered/Resolved]
  - Product use in unapproved indication [Unknown]
  - Incorrect dose administered [Recovered/Resolved]
  - Lethargy [Recovered/Resolved]
  - Influenza [Recovered/Resolved]

NARRATIVE: CASE EVENT DATE: 20220909
